FAERS Safety Report 21693514 (Version 2)
Quarter: 2023Q2

REPORT INFORMATION
  Report Type: Spontaneous
  Country: CA (occurrence: CA)
  Receive Date: 20221207
  Receipt Date: 20230419
  Transmission Date: 20230722
  Serious: Yes (Hospitalization, Other)
  Sender: FDA-Public Use
  Company Number: CA-SA-SAC20221205000998

PATIENT
  Age: 69 Year
  Sex: Male
  Weight: 72 kg

DRUGS (15)
  1. SARCLISA [Suspect]
     Active Substance: ISATUXIMAB-IRFC
     Indication: Chemotherapy
     Dosage: 640 MG, QCY
     Route: 042
  2. DEXAMETHASONE [Suspect]
     Active Substance: DEXAMETHASONE
     Indication: Chemotherapy
     Dosage: 20 MG, QW
  3. POMALIDOMIDE [Suspect]
     Active Substance: POMALIDOMIDE
     Indication: Chemotherapy
     Dosage: 4 MG, QCY
  4. FILGRASTIM [Suspect]
     Active Substance: FILGRASTIM
     Indication: Chemotherapy
     Dosage: 300 MG, Q3W
  5. ACYCLOVIR [Concomitant]
     Active Substance: ACYCLOVIR
  6. BACLOFEN [Concomitant]
     Active Substance: BACLOFEN
  7. DULOXETINE HYDROCHLORIDE [Concomitant]
     Active Substance: DULOXETINE HYDROCHLORIDE
     Route: 048
  8. LEVOTHYROXINE [Concomitant]
     Active Substance: LEVOTHYROXINE
  9. LORAZEPAM [Concomitant]
     Active Substance: LORAZEPAM
  10. PREGABALIN [Concomitant]
     Active Substance: PREGABALIN
  11. PREVYMIS [Concomitant]
     Active Substance: LETERMOVIR
  12. ROSUVASTATIN [Concomitant]
     Active Substance: ROSUVASTATIN
  13. TYLENOL WITH CODEINE [Concomitant]
     Active Substance: ACETAMINOPHEN\CODEINE PHOSPHATE
  14. ASPIRIN [Concomitant]
     Active Substance: ASPIRIN
  15. IZ IVIG [Concomitant]

REACTIONS (7)
  - Haematemesis [Recovered/Resolved]
  - Pancytopenia [Recovered/Resolved]
  - Cytomegalovirus infection [Recovered/Resolved]
  - Pyrexia [Recovered/Resolved]
  - Vomiting [Recovered/Resolved]
  - Nausea [Recovered/Resolved]
  - Central venous catheterisation [Recovered/Resolved]

NARRATIVE: CASE EVENT DATE: 20220624
